FAERS Safety Report 23402485 (Version 3)
Quarter: 2024Q1

REPORT INFORMATION
  Report Type: Spontaneous
  Country: MX (occurrence: MX)
  Receive Date: 20240115
  Receipt Date: 20240313
  Transmission Date: 20240410
  Serious: Yes (Hospitalization, Other)
  Sender: FDA-Public Use
  Company Number: MX-002147023-NVSC2024MX000883

PATIENT
  Sex: Male

DRUGS (1)
  1. GLIVEC [Suspect]
     Active Substance: IMATINIB MESYLATE
     Indication: Chronic myeloid leukaemia
     Dosage: 400 MG, (4 X 100MG)
     Route: 065

REACTIONS (5)
  - Vomiting [Unknown]
  - Hepatic cirrhosis [Unknown]
  - Asthenia [Unknown]
  - Renal disorder [Unknown]
  - Thyroid disorder [Unknown]
